FAERS Safety Report 5892343-X (Version None)
Quarter: 2008Q3

REPORT INFORMATION
  Report Type: 
  Country: None (occurrence: None)
  Receive Date: 20080922
  Receipt Date: 20080922
  Transmission Date: 20090109
  Serious: No
  Sender: FDA-Public Use
  Company Number: None

PATIENT
  Sex: Female

DRUGS (2)
  1. ATIVAN [Suspect]
     Indication: FATIGUE
     Dosage: 0.5MG 2 1/2 QHS
     Dates: start: 20080818, end: 20080918
  2. ATIVAN [Suspect]
     Indication: MULTIPLE CHEMICAL SENSITIVITY
     Dosage: 0.5MG 2 1/2 QHS
     Dates: start: 20080818, end: 20080918

REACTIONS (2)
  - AGITATION [None]
  - PHARMACEUTICAL PRODUCT COMPLAINT [None]
